FAERS Safety Report 4657384-9 (Version None)
Quarter: 2005Q2

REPORT INFORMATION
  Report Type: 
  Country: None (occurrence: None)
  Receive Date: 20050405
  Receipt Date: 20040823
  Transmission Date: 20051028
  Serious: Yes (Hospitalization)
  Sender: FDA-Public Use
  Company Number: 2004048281

PATIENT
  Sex: Female

DRUGS (6)
  1. GEODON [Suspect]
     Indication: SCHIZOAFFECTIVE DISORDER
     Dosage: 160 MG (80 MG, 2 IN 1 D),
     Dates: start: 20040501
  2. ALL OTHER THERAPEUTIC PRODUCTS (ALL OTHER THERAPEUTIC PRODUCTS) [Suspect]
     Indication: ILL-DEFINED DISORDER
  3. BENZTROPINE MESYLATE [Concomitant]
  4. LAMOTRIGINE [Concomitant]
  5. TEMAZEPAM [Concomitant]
  6. ESCITALOPRAM OXALATE [Concomitant]

REACTIONS (3)
  - AKATHISIA [None]
  - CHOREOATHETOSIS [None]
  - TREMOR [None]
